FAERS Safety Report 8096733-9 (Version None)
Quarter: 2012Q1

REPORT INFORMATION
  Report Type: 
  Country: None (occurrence: None)
  Receive Date: 20120129
  Receipt Date: 20111107
  Transmission Date: 20120608
  Serious: No
  Sender: FDA-Public Use
  Company Number: US-ABBOTT-11P-163-0858252-00

PATIENT
  Age: 29 Year
  Sex: Male

DRUGS (13)
  1. FLEXERIL [Concomitant]
  2. NORCO [Concomitant]
     Indication: PAIN
     Dosage: 325/10 MG, AS REQUIRED
  3. CHANTIX [Concomitant]
     Indication: EX-TOBACCO USER
  4. NEURONTIN [Concomitant]
     Indication: MUSCLE SPASMS
  5. DEPAKOTE [Concomitant]
     Indication: CONVULSION
  6. FLEXERIL [Concomitant]
     Indication: MUSCLE SPASMS
  7. ZOLOFT [Concomitant]
     Indication: DEPRESSION
  8. HUMIRA [Suspect]
     Indication: PSORIASIS
     Dates: start: 20110819
  9. COLACE [Concomitant]
     Indication: CONSTIPATION PROPHYLAXIS
  10. MINOCIN ONE [Concomitant]
     Indication: FURUNCLE
  11. PRILOSEC [Concomitant]
     Indication: GASTROOESOPHAGEAL REFLUX DISEASE
  12. MOBIC [Concomitant]
     Indication: BACK DISORDER
  13. ASACOL [Concomitant]
     Indication: COLITIS ULCERATIVE

REACTIONS (11)
  - SPUTUM DISCOLOURED [None]
  - DRUG DOSE OMISSION [None]
  - COUGH [None]
  - NAUSEA [None]
  - FATIGUE [None]
  - SINUS CONGESTION [None]
  - PSORIASIS [None]
  - OROPHARYNGEAL PAIN [None]
  - HEADACHE [None]
  - ASTHENIA [None]
  - INFLUENZA [None]
